FAERS Safety Report 14033043 (Version 1)
Quarter: 2017Q4

REPORT INFORMATION
  Report Type: Report from Study
  Country: CA (occurrence: CA)
  Receive Date: 20171003
  Receipt Date: 20171003
  Transmission Date: 20180321
  Serious: Yes (Other)
  Sender: FDA-Public Use
  Company Number: CA-JNJFOC-20170930736

PATIENT
  Age: 51 Year
  Sex: Female
  Weight: 67.5 kg

DRUGS (1)
  1. STELARA [Suspect]
     Active Substance: USTEKINUMAB
     Indication: COLITIS ULCERATIVE
     Dosage: STRENGTH = 130 MG
     Route: 042
     Dates: start: 20170803

REACTIONS (4)
  - Rectal haemorrhage [Recovered/Resolved]
  - Intestinal resection [Unknown]
  - Product use in unapproved indication [Unknown]
  - Off label use [Unknown]

NARRATIVE: CASE EVENT DATE: 20170803
